FAERS Safety Report 6218608-X (Version None)
Quarter: 2009Q2

REPORT INFORMATION
  Report Type: 
  Country: None (occurrence: None)
  Receive Date: 20090608
  Receipt Date: 20090604
  Transmission Date: 20091009
  Serious: Yes (Hospitalization)
  Sender: FDA-Public Use
  Company Number: ES-PFIZER INC-2009207618

PATIENT
  Age: 35 Year

DRUGS (2)
  1. SALAZOPYRIN [Suspect]
     Dosage: UNK
     Route: 048
     Dates: start: 20090101, end: 20090101
  2. VOLTAREN [Suspect]
     Indication: PSORIATIC ARTHROPATHY
     Dosage: 50 MG, 3X/DAY
     Route: 048
     Dates: start: 20070101, end: 20090101

REACTIONS (4)
  - CONVULSION [None]
  - HEPATIC FAILURE [None]
  - PANCYTOPENIA [None]
  - RENAL FAILURE ACUTE [None]
